FAERS Safety Report 6667635-7 (Version None)
Quarter: 2010Q2

REPORT INFORMATION
  Report Type: 
  Country: None (occurrence: None)
  Receive Date: 20100405
  Receipt Date: 20100329
  Transmission Date: 20101027
  Serious: Yes (Other)
  Sender: FDA-Public Use
  Company Number: A0850761A

PATIENT
  Age: 88 Year
  Sex: Female

DRUGS (3)
  1. ADVAIR DISKUS 100/50 [Suspect]
     Indication: ASTHMA
     Route: 055
  2. ANTIBIOTICS [Concomitant]
     Route: 048
  3. UNKNOWN MEDICATION [Concomitant]

REACTIONS (8)
  - APHASIA [None]
  - COUGH [None]
  - LARYNGEAL OEDEMA [None]
  - MALAISE [None]
  - ODYNOPHAGIA [None]
  - ULCER [None]
  - VOCAL CORD CYST [None]
  - VOCAL CORD INFLAMMATION [None]
